FAERS Safety Report 11908869 (Version 2)
Quarter: 2016Q3

REPORT INFORMATION
  Report Type: Report from Study
  Country: US (occurrence: US)
  Receive Date: 20160111
  Receipt Date: 20160919
  Transmission Date: 20161109
  Serious: Yes (Hospitalization, Other)
  Sender: FDA-Public Use
  Company Number: US-GILEAD-2016-0192057

PATIENT
  Age: 60 Year
  Sex: Female
  Weight: 59 kg

DRUGS (2)
  1. SOFOSBUVIR [Suspect]
     Active Substance: SOFOSBUVIR
     Indication: CHRONIC HEPATITIS C
     Dosage: 400 MG, UNK
     Route: 048
  2. RIBASPHERE RIBAPAK [Suspect]
     Active Substance: RIBAVIRIN
     Indication: CHRONIC HEPATITIS C
     Dosage: UNK
     Route: 048

REACTIONS (6)
  - Hepatic cirrhosis [Unknown]
  - Hepatic encephalopathy [Unknown]
  - Mental status changes [Unknown]
  - Portal vein thrombosis [Unknown]
  - Hospitalisation [Unknown]
  - Drug ineffective [Unknown]

NARRATIVE: CASE EVENT DATE: 20160105
